FAERS Safety Report 9856985 (Version 2)
Quarter: 2014Q1

REPORT INFORMATION
  Report Type: Spontaneous
  Country: JP (occurrence: None)
  Receive Date: 20140128
  Receipt Date: 20140221
  Transmission Date: 20141002
  Serious: No
  Sender: FDA-Public Use
  Company Number: B0963156A

PATIENT
  Age: 90 Year
  Sex: Male

DRUGS (2)
  1. PAROXETINE HYDROCHLORIDE [Suspect]
     Indication: DEPRESSION
     Route: 048
  2. NEUROLEPTIC [Concomitant]

REACTIONS (2)
  - Delirium [None]
  - Hyponatraemia [None]
